FAERS Safety Report 15629617 (Version 1)
Quarter: 2018Q4

REPORT INFORMATION
  Report Type: Spontaneous
  Country: BE (occurrence: BE)
  Receive Date: 20181117
  Receipt Date: 20181117
  Transmission Date: 20190205
  Serious: Yes (Hospitalization)
  Sender: FDA-Public Use
  Company Number: BE-ROCHE-2213547

PATIENT

DRUGS (1)
  1. TECENTRIQ [Suspect]
     Active Substance: ATEZOLIZUMAB
     Indication: LUNG NEOPLASM MALIGNANT
     Route: 042
     Dates: end: 201809

REACTIONS (3)
  - Febrile neutropenia [Unknown]
  - Cholestasis [Unknown]
  - Hepatitis [Unknown]

NARRATIVE: CASE EVENT DATE: 20181030
